FAERS Safety Report 24264054 (Version 1)
Quarter: 2024Q3

REPORT INFORMATION
  Report Type: Spontaneous
  Country: US (occurrence: US)
  Receive Date: 20240829
  Receipt Date: 20240829
  Transmission Date: 20241016
  Serious: No
  Sender: INCYTE
  Company Number: US-INCYTE CORPORATION-2021IN008933

PATIENT

DRUGS (1)
  1. JAKAFI [Suspect]
     Active Substance: RUXOLITINIB
     Dosage: 5 MILLIGRAM, QD
     Route: 048
     Dates: start: 202105

REACTIONS (4)
  - Gastrointestinal disorder [Unknown]
  - Depression [Unknown]
  - Neuralgia [Unknown]
  - Headache [Unknown]

NARRATIVE: CASE EVENT DATE: 20210801
